FAERS Safety Report 9393748 (Version 1)
Quarter: 2013Q3

REPORT INFORMATION
  Report Type: Spontaneous
  Country: ES (occurrence: None)
  Receive Date: 20130705
  Receipt Date: 20130705
  Transmission Date: 20140515
  Serious: Yes (Hospitalization)
  Sender: FDA-Public Use
  Company Number: IPC201306-000251

PATIENT
  Age: 32 Year
  Sex: Male

DRUGS (8)
  1. METOCLOPRAMIDE HYDROCHLORIDE [Suspect]
  2. DIPYRONE [Suspect]
  3. DIMETHICONE [Suspect]
  4. OXAZEPAM [Suspect]
  5. PLANTAGO OVATA LEAF [Suspect]
  6. HERBAL MIXTURE CONTAINING HYPERICUM PERFORATUM + PASSIFLORA INCARNATA [Suspect]
  7. ACETAMINOPHEN [Suspect]
  8. IBUPROFEN [Suspect]

REACTIONS (1)
  - Drug reaction with eosinophilia and systemic symptoms [None]
